FAERS Safety Report 19185890 (Version 3)
Quarter: 2022Q2

REPORT INFORMATION
  Report Type: Spontaneous
  Country: CA (occurrence: CA)
  Receive Date: 20210427
  Receipt Date: 20220405
  Transmission Date: 20220721
  Serious: Yes (Other)
  Sender: FDA-Public Use
  Company Number: CA-SAMSUNG BIOEPIS-SB-2021-10050

PATIENT
  Age: 19 Year
  Sex: Male
  Weight: 70 kg

DRUGS (3)
  1. INFLIXIMAB [Suspect]
     Active Substance: INFLIXIMAB
     Indication: Colitis ulcerative
     Route: 042
  2. PREDNISONE [Concomitant]
     Active Substance: PREDNISONE
     Indication: Colitis ulcerative
     Dosage: UNKNOWN
     Route: 065
  3. SOLU-MEDROL [Concomitant]
     Active Substance: METHYLPREDNISOLONE SODIUM SUCCINATE
     Indication: Colitis ulcerative
     Dosage: UNKNOWN
     Route: 065

REACTIONS (7)
  - Condition aggravated [Recovered/Resolved]
  - Decreased appetite [Recovered/Resolved]
  - Malaise [Recovered/Resolved]
  - Weight increased [Recovered/Resolved]
  - Drug level above therapeutic [Recovered/Resolved]
  - Drug level decreased [Recovered/Resolved]
  - Off label use [Recovered/Resolved]
